FAERS Safety Report 15617655 (Version 2)
Quarter: 2018Q4

REPORT INFORMATION
  Report Type: Spontaneous
  Country: US (occurrence: US)
  Receive Date: 20181114
  Receipt Date: 20181121
  Transmission Date: 20190205
  Serious: Yes (Other)
  Sender: FDA-Public Use
  Company Number: US-PFIZER INC-2015133502

PATIENT
  Age: 61 Year
  Sex: Female
  Weight: 58.96 kg

DRUGS (1)
  1. PRISTIQ EXTENDED-RELEASE [Suspect]
     Active Substance: DESVENLAFAXINE SUCCINATE

REACTIONS (4)
  - Multiple sclerosis [Unknown]
  - Weight fluctuation [Unknown]
  - Musculoskeletal stiffness [Unknown]
  - Gastrointestinal disorder [Unknown]
